FAERS Safety Report 7606864-2 (Version None)
Quarter: 2011Q3

REPORT INFORMATION
  Report Type: 
  Country: None (occurrence: None)
  Receive Date: 20110713
  Receipt Date: 20110620
  Transmission Date: 20111222
  Serious: Yes (Other)
  Sender: FDA-Public Use
  Company Number: DE-GLAXOSMITHKLINE-B0679342A

PATIENT
  Sex: Female

DRUGS (3)
  1. LAMOTRIGINE [Suspect]
     Indication: PARTIAL SEIZURES
     Dosage: 200MG TWICE PER DAY
     Route: 048
     Dates: start: 20080701
  2. NORDETTE-28 [Concomitant]
     Indication: CONTRACEPTION
     Route: 048
     Dates: start: 20100508
  3. KEPPRA [Suspect]
     Indication: PARTIAL SEIZURES
     Dosage: 1500MG TWICE PER DAY
     Route: 048
     Dates: start: 20080801

REACTIONS (4)
  - SUICIDAL IDEATION [None]
  - INTENTIONAL SELF-INJURY [None]
  - MOOD SWINGS [None]
  - NEGATIVISM [None]
